FAERS Safety Report 8523863-7 (Version None)
Quarter: 2012Q3

REPORT INFORMATION
  Report Type: 
  Country: None (occurrence: None)
  Receive Date: 20120720
  Receipt Date: 20120711
  Transmission Date: 20120928
  Serious: Yes (Other)
  Sender: FDA-Public Use
  Company Number: US-JNJFOC-20120706124

PATIENT
  Age: 66 Year
  Sex: Female
  Weight: 45.36 kg

DRUGS (2)
  1. AMITRIPTYLINE HCL [Concomitant]
     Indication: MIGRAINE
     Route: 065
  2. BENADRYL [Suspect]
     Indication: SLEEP DISORDER THERAPY
     Dosage: 1 LIQUIDGEL AT NIGHT BEFORE BED
     Route: 048

REACTIONS (4)
  - OFF LABEL USE [None]
  - THERAPEUTIC RESPONSE UNEXPECTED [None]
  - DEPRESSION [None]
  - PRODUCT PACKAGING ISSUE [None]
